FAERS Safety Report 5753389-5 (Version None)
Quarter: 2008Q2

REPORT INFORMATION
  Report Type: 
  Country: None (occurrence: None)
  Receive Date: 20080527
  Receipt Date: 20080515
  Transmission Date: 20081010
  Serious: Yes (Life-Threatening, Hospitalization)
  Sender: FDA-Public Use
  Company Number: LTI2008A00147

PATIENT
  Age: 67 Year
  Sex: Male

DRUGS (5)
  1. ACTOS [Suspect]
     Indication: TYPE 2 DIABETES MELLITUS
     Dosage: ORAL
     Route: 048
     Dates: start: 20031124
  2. METFORMIN HCL [Suspect]
     Indication: TYPE 2 DIABETES MELLITUS
     Dosage: 2 GM (1GM,2 IN 1 D) ORAL
     Route: 048
     Dates: end: 20080401
  3. SIMVASTATIN [Suspect]
     Indication: HYPERCHOLESTEROLAEMIA
     Dosage: 40 MG (20 MG,2 IN 1 D) ORAL
     Route: 048
  4. RAMIPRIL [Suspect]
     Indication: HYPERTENSION
     Dosage: 10 MG (10 MG,1 IN 1 D) ORAL
     Route: 048
  5. KARDEGIC(ACETYLSALICYLATE LYSINE) [Suspect]
     Indication: ARTERIOSCLEROSIS OBLITERANS
     Dosage: 75 MG (75 MG,1 IN 1 D) ORAL
     Route: 048

REACTIONS (2)
  - ACUTE CORONARY SYNDROME [None]
  - MYOCARDIAL INFARCTION [None]
